FAERS Safety Report 6371107-7 (Version None)
Quarter: 2009Q3

REPORT INFORMATION
  Report Type: 
  Country: None (occurrence: None)
  Receive Date: 20090923
  Receipt Date: 20090918
  Transmission Date: 20100115
  Serious: Yes (Death, Hospitalization)
  Sender: FDA-Public Use
  Company Number: PHEH2009US11114

PATIENT
  Sex: Male
  Weight: 102.49 kg

DRUGS (1)
  1. EXJADE [Suspect]
     Dosage: 3000 MG, QD
     Route: 048
     Dates: start: 20090506, end: 20090715

REACTIONS (2)
  - CONDITION AGGRAVATED [None]
  - STAPHYLOCOCCAL INFECTION [None]
